FAERS Safety Report 4349144-3 (Version None)
Quarter: 2004Q2

REPORT INFORMATION
  Report Type: 
  Country: None (occurrence: None)
  Receive Date: 20040423
  Receipt Date: 20040414
  Transmission Date: 20050107
  Serious: Yes (Other)
  Sender: FDA-Public Use
  Company Number: 2004-03-2030

PATIENT
  Age: 54 Year
  Sex: Female

DRUGS (5)
  1. TEMODAL [Suspect]
     Indication: GLIOBLASTOMA
     Dosage: SEE IMAGE
     Route: 048
     Dates: start: 20040211, end: 20040215
  2. TEMODAL [Suspect]
     Indication: GLIOBLASTOMA
     Dosage: SEE IMAGE
     Route: 048
     Dates: start: 20040211, end: 20040310
  3. TEMODAL [Suspect]
     Indication: GLIOBLASTOMA
     Dosage: SEE IMAGE
     Route: 048
     Dates: start: 20040310, end: 20040310
  4. CARBAMAZEPINE [Concomitant]
  5. FUROSEMIDE [Concomitant]

REACTIONS (1)
  - ERYTHEMA [None]
